FAERS Safety Report 21111799 (Version 1)
Quarter: 2022Q3

REPORT INFORMATION
  Report Type: Spontaneous
  Country: US (occurrence: US)
  Receive Date: 20220721
  Receipt Date: 20220721
  Transmission Date: 20221026
  Serious: No
  Sender: FDA-Public Use
  Company Number: US-PFIZER INC-202200978698

PATIENT
  Age: 50 Year
  Sex: Female
  Weight: 102.06 kg

DRUGS (1)
  1. PAXLOVID [Suspect]
     Active Substance: NIRMATRELVIR\RITONAVIR
     Indication: COVID-19 treatment
     Dosage: THREE PILLS TWICE A DAY BY MOUTH FOR FIVE DAYS
     Route: 048
     Dates: start: 20220715

REACTIONS (4)
  - Therapeutic product effect incomplete [Unknown]
  - Dysgeusia [Unknown]
  - Anosmia [Not Recovered/Not Resolved]
  - Ageusia [Not Recovered/Not Resolved]

NARRATIVE: CASE EVENT DATE: 20220715
